FAERS Safety Report 10416879 (Version 1)
Quarter: 2014Q3

REPORT INFORMATION
  Report Type: Spontaneous
  Country: US (occurrence: None)
  Receive Date: 20140826
  Receipt Date: 20140826
  Transmission Date: 20150326
  Serious: Yes (Hospitalization)
  Sender: FDA-Public Use
  Company Number: VAL_03314_2014

PATIENT
  Sex: Female

DRUGS (11)
  1. SIMVASTATIN. [Concomitant]
     Active Substance: SIMVASTATIN
  2. LISINOPRIL. [Concomitant]
     Active Substance: LISINOPRIL
  3. CALCIUM ACETATE. [Concomitant]
     Active Substance: CALCIUM ACETATE
  4. EPOETIN ALFA [Concomitant]
     Active Substance: ERYTHROPOIETIN
  5. ONDANSETRON [Concomitant]
     Active Substance: ONDANSETRON
  6. ERGOCALCIFEROL. [Concomitant]
     Active Substance: ERGOCALCIFEROL
  7. CALCITRIOL. [Suspect]
     Active Substance: CALCITRIOL
     Indication: PRODUCT USED FOR UNKNOWN INDICATION
     Route: 048
  8. SODIUM BICARBONATE. [Concomitant]
     Active Substance: SODIUM BICARBONATE
  9. LACTOBACILLUS RHAMNOSUS [Concomitant]
     Active Substance: LACTOBACILLUS RHAMNOSUS
  10. AMLODIPINE [Concomitant]
     Active Substance: AMLODIPINE BESYLATE
  11. PANTOPRAZOLE [Concomitant]
     Active Substance: PANTOPRAZOLE SODIUM

REACTIONS (21)
  - Blood creatinine increased [None]
  - Dysgeusia [None]
  - Oedema [None]
  - Tachycardia [None]
  - Blood urea increased [None]
  - Red blood cell count decreased [None]
  - Decreased appetite [None]
  - Blood potassium decreased [None]
  - Blood iron increased [None]
  - Blood albumin decreased [None]
  - Hypertension [None]
  - Blood phosphorus increased [None]
  - Body height below normal [None]
  - Vomiting [None]
  - Blood calcium decreased [None]
  - Failure to thrive [None]
  - Fatigue [None]
  - Dysphagia [None]
  - Renal failure acute [None]
  - Blood cholesterol increased [None]
  - Haemoglobin decreased [None]
